FAERS Safety Report 5944549-9 (Version None)
Quarter: 2008Q4

REPORT INFORMATION
  Report Type: 
  Country: None (occurrence: None)
  Receive Date: 20081107
  Receipt Date: 20081030
  Transmission Date: 20090506
  Serious: Yes (Hospitalization)
  Sender: FDA-Public Use
  Company Number: FR-BAYER-200829578GPV

PATIENT
  Age: 76 Year
  Sex: Male

DRUGS (5)
  1. CIPROFLOXACIN HYDROCHLORIDE [Suspect]
     Indication: OSTEITIS
     Dosage: UNIT DOSE: 750 MG
     Route: 048
     Dates: start: 20080208, end: 20080326
  2. VANCOMYCIN [Suspect]
     Indication: OSTEITIS
     Dosage: UNIT DOSE: 750 MG
     Route: 041
     Dates: start: 20080208, end: 20080319
  3. TIENAM [Suspect]
     Indication: OSTEITIS
     Dosage: UNIT DOSE: 1 G
     Route: 041
     Dates: start: 20080208, end: 20080327
  4. CARDENSIEL [Concomitant]
     Indication: ATRIAL FIBRILLATION
     Dosage: UNIT DOSE: 2.5 MG
     Route: 065
     Dates: start: 20080209, end: 20080319
  5. ESIDRIX [Concomitant]
     Indication: DRUG USE FOR UNKNOWN INDICATION
     Route: 065

REACTIONS (1)
  - DRUG RASH WITH EOSINOPHILIA AND SYSTEMIC SYMPTOMS [None]
